FAERS Safety Report 23135175 (Version 3)
Quarter: 2024Q2

REPORT INFORMATION
  Report Type: Report from Study
  Country: MX (occurrence: MX)
  Receive Date: 20231101
  Receipt Date: 20240606
  Transmission Date: 20240716
  Serious: No
  Sender: FDA-Public Use
  Company Number: MX-002147023-NVSC2023MX083772

PATIENT
  Age: 36 Year
  Sex: Female
  Weight: 59 kg

DRUGS (8)
  1. GILENYA [Suspect]
     Active Substance: FINGOLIMOD HYDROCHLORIDE
     Indication: Multiple sclerosis
     Dosage: 0.5 MG, QD
     Route: 048
     Dates: start: 20201106, end: 2021
  2. GILENYA [Suspect]
     Active Substance: FINGOLIMOD HYDROCHLORIDE
     Dosage: 1 OF 0.5 MG, QD
     Route: 048
     Dates: start: 20201106, end: 20240325
  3. GILENYA [Suspect]
     Active Substance: FINGOLIMOD HYDROCHLORIDE
     Dosage: 0.5 MG, EVERY OTHER DAY
     Route: 048
     Dates: start: 2021, end: 2021
  4. GILENYA [Suspect]
     Active Substance: FINGOLIMOD HYDROCHLORIDE
     Dosage: 0.5 MG, QD
     Route: 048
     Dates: start: 2021
  5. GILENYA [Suspect]
     Active Substance: FINGOLIMOD HYDROCHLORIDE
     Dosage: 0.5 MG, QD
     Route: 048
  6. GILENYA [Suspect]
     Active Substance: FINGOLIMOD HYDROCHLORIDE
     Dosage: UNK
     Route: 065
     Dates: start: 20240330
  7. SULBUTIAMINE [Concomitant]
     Active Substance: SULBUTIAMINE
     Indication: Fatigue
     Dosage: 1 DOSAGE FORM, QD (STARTED 2 YEARS  AGO)
     Route: 048
  8. SULBUTIAMINE [Concomitant]
     Active Substance: SULBUTIAMINE
     Dosage: 1 DOSAGE FORM, QD
     Route: 048
     Dates: start: 2021

REACTIONS (26)
  - Decreased immune responsiveness [Not Recovered/Not Resolved]
  - Pain [Recovered/Resolved]
  - Pharyngeal inflammation [Recovered/Resolved]
  - Pharyngeal inflammation [Recovered/Resolved]
  - Pharyngitis [Recovered/Resolved]
  - Infection [Not Recovered/Not Resolved]
  - Influenza [Recovered/Resolved]
  - Cough [Recovered/Resolved]
  - Nasopharyngitis [Recovering/Resolving]
  - Arthralgia [Recovered/Resolved]
  - Pyrexia [Recovered/Resolved]
  - Influenza [Recovered/Resolved]
  - Cough [Recovered/Resolved]
  - Dyspnoea [Recovering/Resolving]
  - Off label use [Recovered/Resolved]
  - Product supply issue [Unknown]
  - Product dose omission in error [Recovered/Resolved]
  - Illness [Unknown]
  - Stress at work [Unknown]
  - Oropharyngeal pain [Recovering/Resolving]
  - Throat irritation [Recovering/Resolving]
  - Tonsillitis [Recovering/Resolving]
  - Pyrexia [Recovered/Resolved]
  - Hyperhidrosis [Recovering/Resolving]
  - Pharyngitis [Unknown]
  - Pyrexia [Recovered/Resolved]

NARRATIVE: CASE EVENT DATE: 20201101
